FAERS Safety Report 6917603-2 (Version None)
Quarter: 2010Q3

REPORT INFORMATION
  Report Type: 
  Country: None (occurrence: None)
  Receive Date: 20100810
  Receipt Date: 20090319
  Transmission Date: 20110219
  Serious: No
  Sender: FDA-Public Use
  Company Number: US-PFIZER INC-2009151384

PATIENT
  Sex: Male
  Weight: 110 kg

DRUGS (4)
  1. LIPITOR [Suspect]
     Indication: BLOOD CHOLESTEROL INCREASED
     Dosage: FREQUENCY: EVERY OTHER DAY;
     Dates: start: 20080101, end: 20090103
  2. ACETYLSALICYLIC ACID [Concomitant]
     Dosage: UNK
  3. OMEGA-3 TRIGLYCERIDES [Concomitant]
     Dosage: UNK
  4. ACIPHEX [Concomitant]
     Indication: PROPHYLAXIS
     Dosage: UNK

REACTIONS (3)
  - HYPERTENSION [None]
  - MUSCULOSKELETAL DISCOMFORT [None]
  - PARAESTHESIA ORAL [None]
